FAERS Safety Report 9747021 (Version 1)
Quarter: 2013Q4

REPORT INFORMATION
  Report Type: Report from Study
  Country: DE (occurrence: DE)
  Receive Date: 20131211
  Receipt Date: 20131211
  Transmission Date: 20140711
  Serious: Yes (Death)
  Sender: FDA-Public Use
  Company Number: DE-BAXTER-2013BAX050079

PATIENT
  Sex: 0

DRUGS (1)
  1. FEIBA NF 500 E [Suspect]
     Indication: ACQUIRED HAEMOPHILIA
     Route: 065

REACTIONS (1)
  - Cardiovascular disorder [Fatal]
